FAERS Safety Report 18455860 (Version 2)
Quarter: 2020Q4

REPORT INFORMATION
  Report Type: Report from Study
  Country: None (occurrence: US)
  Receive Date: 20201102
  Receipt Date: 20201106
  Transmission Date: 20210114
  Serious: Yes (Other)
  Sender: FDA-Public Use
  Company Number: US-ABBVIE-20K-163-3628740-00

PATIENT
  Sex: Female

DRUGS (1)
  1. MAVYRET [Suspect]
     Active Substance: GLECAPREVIR\PIBRENTASVIR
     Indication: CHRONIC HEPATITIS C
     Route: 048

REACTIONS (5)
  - Eye haemorrhage [Not Recovered/Not Resolved]
  - Intracranial aneurysm [Unknown]
  - Head injury [Unknown]
  - Skin laceration [Unknown]
  - Asthenia [Unknown]
